FAERS Safety Report 16383943 (Version 2)
Quarter: 2019Q2

REPORT INFORMATION
  Report Type: Spontaneous
  Country: PT (occurrence: PT)
  Receive Date: 20190603
  Receipt Date: 20190603
  Transmission Date: 20190711
  Serious: Yes (Death, Hospitalization)
  Sender: FDA-Public Use
  Company Number: PHHY2019PT126668

PATIENT
  Age: 79 Year
  Sex: Female

DRUGS (5)
  1. WARFARIN [Suspect]
     Active Substance: WARFARIN
     Indication: PRODUCT USED FOR UNKNOWN INDICATION
     Route: 065
  2. HEPARIN [Concomitant]
     Active Substance: HEPARIN SODIUM
     Indication: NEPHROPATHY
     Route: 065
  3. PREDNISOLONE. [Suspect]
     Active Substance: PREDNISOLONE
     Indication: OLIGOARTHRITIS
     Dosage: 20 MG, QD
     Route: 065
  4. CALCIUM CARBONATE. [Suspect]
     Active Substance: CALCIUM CARBONATE
     Indication: PRODUCT USED FOR UNKNOWN INDICATION
     Route: 065
  5. IRON [Suspect]
     Active Substance: IRON
     Indication: ANAEMIA
     Dosage: UNK UNK, QW
     Route: 042

REACTIONS (9)
  - Septic shock [Fatal]
  - Morganella infection [Unknown]
  - Multiple organ dysfunction syndrome [Fatal]
  - Calciphylaxis [Unknown]
  - Skin lesion [Unknown]
  - Anaemia [Unknown]
  - Pain [Unknown]
  - Citrobacter infection [Unknown]
  - Chronic kidney disease [Unknown]
